FAERS Safety Report 9518954 (Version 2)
Quarter: 2013Q3

REPORT INFORMATION
  Report Type: Spontaneous
  Country: US (occurrence: US)
  Receive Date: 20130912
  Receipt Date: 20130917
  Transmission Date: 20140515
  Serious: No
  Sender: FDA-Public Use
  Company Number: US-PFIZER INC-2013261052

PATIENT
  Sex: Male

DRUGS (2)
  1. VIAGRA [Suspect]
     Dosage: UNK
  2. ALCOHOL [Interacting]
     Dosage: UNK

REACTIONS (5)
  - Nasal congestion [Unknown]
  - Drug ineffective [Unknown]
  - Alcohol interaction [Unknown]
  - Food interaction [Unknown]
  - Drug effect delayed [Unknown]
